FAERS Safety Report 10543479 (Version 4)
Quarter: 2015Q3

REPORT INFORMATION
  Report Type: Spontaneous
  Country: US (occurrence: US)
  Receive Date: 20141027
  Receipt Date: 20150826
  Transmission Date: 20151125
  Serious: Yes (Other)
  Sender: FDA-Public Use
  Company Number: US-PFIZER INC-2014292022

PATIENT
  Age: 78 Year
  Sex: Female
  Weight: 45 kg

DRUGS (13)
  1. TOPROL XL [Concomitant]
     Active Substance: METOPROLOL SUCCINATE
     Dosage: 50 MG, 1X/DAY
  2. MULTIVIT [Concomitant]
     Active Substance: VITAMINS
     Dosage: ONCE A DAY
  3. REVATIO [Suspect]
     Active Substance: SILDENAFIL CITRATE
     Indication: DYSPNOEA
  4. PANTOPRAZOLE [Concomitant]
     Active Substance: PANTOPRAZOLE SODIUM
     Dosage: 40 MG, DAILY
  5. ALPHAGAN P [Concomitant]
     Active Substance: BRIMONIDINE TARTRATE
     Dosage: 1 GTT IN EACH EYE, 2X/DAY
     Route: 047
  6. LASIX [Concomitant]
     Active Substance: FUROSEMIDE
     Dosage: 40 MG, DAILY
  7. CALTRATE [Concomitant]
     Active Substance: CALCIUM CARBONATE
     Dosage: ONCE A DAY
  8. IRON [Concomitant]
     Active Substance: IRON
     Dosage: ONCE A DAY
  9. REVATIO [Suspect]
     Active Substance: SILDENAFIL CITRATE
     Indication: PULMONARY HYPERTENSION
     Dosage: 20 MG, 3X/DAY (1 -3 X A DAY)
     Dates: start: 201112
  10. SYNTHROID [Concomitant]
     Active Substance: LEVOTHYROXINE SODIUM
     Dosage: 75 UG, 1X/DAY
  11. AMLODIPINE [Concomitant]
     Active Substance: AMLODIPINE BESYLATE
     Dosage: 2.5 MG, DAILY
  12. WARFARIN [Concomitant]
     Active Substance: WARFARIN
     Dosage: 2.5 MG, DAILY
  13. POTASSIUM [Concomitant]
     Active Substance: POTASSIUM
     Dosage: 10 MG, DAILY

REACTIONS (4)
  - Fall [Unknown]
  - Dyspnoea [Recovering/Resolving]
  - Intentional product use issue [Recovered/Resolved]
  - Depressed mood [Unknown]
